FAERS Safety Report 20930283 (Version 1)
Quarter: 2022Q2

REPORT INFORMATION
  Report Type: Spontaneous
  Country: US (occurrence: US)
  Receive Date: 20220608
  Receipt Date: 20220608
  Transmission Date: 20220720
  Serious: No
  Sender: FDA-Public Use
  Company Number: US-drreddys-SPO/USA/22/0150625

PATIENT
  Age: 18 Year
  Sex: Female

DRUGS (1)
  1. ZENATANE [Suspect]
     Active Substance: ISOTRETINOIN
     Indication: Product used for unknown indication
     Dosage: RMA ISSUE DATE: 11 JANUARY 2022 09:25:28 AM, 15 FEBRUARY 2022 04:53:46 PM, 15 MARCH 2022 05:45:33 PM

REACTIONS (3)
  - Dry skin [Unknown]
  - Drug ineffective [Unknown]
  - Product quality issue [Unknown]
